FAERS Safety Report 4407822-1 (Version None)
Quarter: 2004Q3

REPORT INFORMATION
  Report Type: 
  Country: None (occurrence: None)
  Receive Date: 20040726
  Receipt Date: 20040302
  Transmission Date: 20050211
  Serious: Yes (Congenital Anomaly)
  Sender: FDA-Public Use
  Company Number: PL-GLAXOSMITHKLINE-B0325365B

PATIENT
  Sex: Male

DRUGS (4)
  1. LAMICTAL [Suspect]
     Indication: DRUG USE FOR UNKNOWN INDICATION
     Dates: start: 20030101, end: 20040109
  2. FOLIC ACID [Concomitant]
  3. DIHYDRALAZINE [Concomitant]
  4. ANTIBIOTIC [Concomitant]

REACTIONS (5)
  - BRAIN MALFORMATION [None]
  - DRUG EXPOSURE DURING PREGNANCY [None]
  - RENAL DISORDER [None]
  - ULTRASOUND SKULL ABNORMAL [None]
  - UMBILICAL CORD AROUND NECK [None]
